FAERS Safety Report 11167882 (Version 1)
Quarter: 2015Q2

REPORT INFORMATION
  Report Type: Spontaneous
  Country: US (occurrence: None)
  Receive Date: 20150604
  Receipt Date: 20150604
  Transmission Date: 20150821
  Serious: Yes (Other)
  Sender: FDA-Public Use
  Company Number: None

PATIENT
  Age: 42 Year
  Sex: Female
  Weight: 74.5 kg

DRUGS (2)
  1. CELECOXIB. [Suspect]
     Active Substance: CELECOXIB
     Indication: EYE INFLAMMATION
     Dosage: 1-2 PER DAY
     Route: 048
     Dates: start: 20150417, end: 20150422
  2. CELECOXIB. [Suspect]
     Active Substance: CELECOXIB
     Indication: ANKYLOSING SPONDYLITIS
     Dosage: 1-2 PER DAY
     Route: 048
     Dates: start: 20150417, end: 20150422

REACTIONS (4)
  - Product substitution issue [None]
  - Arthralgia [None]
  - Colitis ulcerative [None]
  - Eye inflammation [None]

NARRATIVE: CASE EVENT DATE: 20150421
